FAERS Safety Report 18759390 (Version 1)
Quarter: 2021Q1

REPORT INFORMATION
  Report Type: Spontaneous
  Country: FR (occurrence: FR)
  Receive Date: 20210120
  Receipt Date: 20210120
  Transmission Date: 20210419
  Serious: Yes (Life-Threatening, Other)
  Sender: FDA-Public Use
  Company Number: FR-AUROBINDO-AUR-APL-2021-001915

PATIENT
  Age: 66 Year
  Sex: Female

DRUGS (2)
  1. CARBOPLATIN. [Suspect]
     Active Substance: CARBOPLATIN
     Indication: OVARIAN CANCER
     Dosage: UNK UNK, 6 CYCLICAL (THIRD LINE)
     Route: 065
     Dates: start: 201508
  2. GEMCITABINE. [Suspect]
     Active Substance: GEMCITABINE
     Indication: OVARIAN CANCER
     Dosage: UNK UNK, 6 CYCLICAL (THIRD LINE)
     Route: 065
     Dates: start: 201508

REACTIONS (7)
  - Drug hypersensitivity [Recovered/Resolved]
  - Anaemia [Unknown]
  - Toxicity to various agents [Unknown]
  - Neutropenia [Unknown]
  - Drug-induced liver injury [Unknown]
  - Neuropathy peripheral [Unknown]
  - Escherichia infection [Recovered/Resolved]
